FAERS Safety Report 16753505 (Version 1)
Quarter: 2019Q3

REPORT INFORMATION
  Report Type: Spontaneous
  Country: US (occurrence: US)
  Receive Date: 20190829
  Receipt Date: 20190829
  Transmission Date: 20191005
  Serious: No
  Sender: FDA-Public Use
  Company Number: US-GLAXOSMITHKLINE-US2019AMR155302

PATIENT
  Age: 56 Year
  Sex: Female

DRUGS (1)
  1. FLUTICASONE PROPIONATE+SALMETEROL XINAFOATE INHALATION POWDER [Suspect]
     Active Substance: FLUTICASONE PROPIONATE\SALMETEROL XINAFOATE
     Indication: ASTHMA
     Dosage: UNK
     Route: 065

REACTIONS (1)
  - Product dose omission [Unknown]
